FAERS Safety Report 15598294 (Version 1)
Quarter: 2018Q4

REPORT INFORMATION
  Report Type: Spontaneous
  Country: US (occurrence: US)
  Receive Date: 20181108
  Receipt Date: 20181108
  Transmission Date: 20190205
  Serious: No
  Sender: FDA-Public Use
  Company Number: US-ALLERGAN-1832987US

PATIENT
  Age: 65 Year
  Sex: Male

DRUGS (3)
  1. RAPAFLO [Suspect]
     Active Substance: SILODOSIN
     Dosage: 16 MG, QD
     Route: 048
  2. RAPAFLO [Suspect]
     Active Substance: SILODOSIN
     Indication: PROSTATOMEGALY
     Dosage: 8 MG, QD
     Route: 048
  3. RAPAFLO [Suspect]
     Active Substance: SILODOSIN
     Dosage: 8 MG, QD
     Route: 048

REACTIONS (6)
  - Urinary retention [Recovered/Resolved]
  - Overdose [Unknown]
  - Diarrhoea [Unknown]
  - Off label use [Unknown]
  - Drug ineffective [Unknown]
  - Infection parasitic [Unknown]

NARRATIVE: CASE EVENT DATE: 201805
